FAERS Safety Report 6312997-3 (Version None)
Quarter: 2009Q3

REPORT INFORMATION
  Report Type: 
  Country: None (occurrence: None)
  Receive Date: 20090818
  Receipt Date: 20090807
  Transmission Date: 20100115
  Serious: Yes (Other)
  Sender: FDA-Public Use
  Company Number: PHHY2009JP29896

PATIENT
  Sex: Male

DRUGS (5)
  1. AMN107 AMN+CAP [Suspect]
     Indication: CHRONIC MYELOID LEUKAEMIA
     Dosage: 800 MG/DAY
     Route: 048
     Dates: start: 20090703, end: 20090716
  2. ZYLORIC ^FRESENIUS^ [Concomitant]
     Indication: CHRONIC MYELOID LEUKAEMIA
     Dosage: 50 MG, UNK
     Route: 048
     Dates: start: 20090710, end: 20090716
  3. URSO 250 [Concomitant]
     Dosage: 600 MG, UNK
     Route: 048
     Dates: start: 20090703
  4. JUZENTAIHOTO [Concomitant]
     Dosage: 7.5 MG, UNK
     Route: 048
     Dates: start: 20090703
  5. EVAMYL [Concomitant]
     Dosage: 4 MG, UNK
     Route: 048
     Dates: start: 20090703

REACTIONS (1)
  - ELECTROCARDIOGRAM QT PROLONGED [None]
